FAERS Safety Report 6108729-4 (Version None)
Quarter: 2009Q1

REPORT INFORMATION
  Report Type: 
  Country: None (occurrence: None)
  Receive Date: 20090306
  Receipt Date: 20090306
  Transmission Date: 20090719
  Serious: Yes (Other)
  Sender: FDA-Public Use
  Company Number: None

PATIENT
  Age: 19 Year
  Sex: Female
  Weight: 114.3065 kg

DRUGS (8)
  1. OCELLA [Suspect]
     Indication: ANAEMIA
     Dosage: 0.03 MG ONCE PO QDAY PO
     Route: 048
     Dates: start: 20080723
  2. OCELLA [Suspect]
     Indication: OLIGOMENORRHOEA
     Dosage: 0.03 MG ONCE PO QDAY PO
     Route: 048
     Dates: start: 20080723
  3. OCELLA [Suspect]
     Indication: ANAEMIA
     Dosage: 0.03 MG ONCE PO QDAY PO
     Route: 048
     Dates: start: 20080825
  4. OCELLA [Suspect]
     Indication: OLIGOMENORRHOEA
     Dosage: 0.03 MG ONCE PO QDAY PO
     Route: 048
     Dates: start: 20080825
  5. OCELLA [Suspect]
     Indication: ANAEMIA
     Dosage: 0.03 MG ONCE PO QDAY PO
     Route: 048
     Dates: start: 20080917
  6. OCELLA [Suspect]
     Indication: OLIGOMENORRHOEA
     Dosage: 0.03 MG ONCE PO QDAY PO
     Route: 048
     Dates: start: 20080917
  7. OCELLA [Suspect]
     Indication: ANAEMIA
     Dosage: 0.03 MG ONCE PO QDAY PO
     Route: 048
     Dates: start: 20081021
  8. OCELLA [Suspect]
     Indication: OLIGOMENORRHOEA
     Dosage: 0.03 MG ONCE PO QDAY PO
     Route: 048
     Dates: start: 20081021

REACTIONS (5)
  - ANXIETY [None]
  - CRYING [None]
  - IRRITABILITY [None]
  - MOOD SWINGS [None]
  - THERAPEUTIC RESPONSE UNEXPECTED WITH DRUG SUBSTITUTION [None]
